FAERS Safety Report 23013470 (Version 2)
Quarter: 2023Q4

REPORT INFORMATION
  Report Type: Spontaneous
  Country: US (occurrence: US)
  Receive Date: 20231001
  Receipt Date: 20231211
  Transmission Date: 20240109
  Serious: No
  Sender: FDA-Public Use
  Company Number: US-SA-SAC20230926001127

PATIENT
  Age: 7 Year
  Sex: Male

DRUGS (6)
  1. ELOCTATE [Suspect]
     Active Substance: EFMOROCTOCOG ALFA
     Indication: Factor VIII deficiency
     Dosage: 1000 U, TIW
     Route: 042
     Dates: start: 202301, end: 2023
  2. ELOCTATE [Suspect]
     Active Substance: EFMOROCTOCOG ALFA
     Indication: Factor VIII deficiency
     Dosage: 1000 U, TIW
     Route: 042
     Dates: start: 202301, end: 2023
  3. ELOCTATE [Suspect]
     Active Substance: EFMOROCTOCOG ALFA
     Dosage: 1000 U, BIW
     Route: 042
     Dates: start: 2023
  4. ELOCTATE [Suspect]
     Active Substance: EFMOROCTOCOG ALFA
     Dosage: 1000 U, BIW
     Route: 042
     Dates: start: 2023
  5. HEMLIBRA [Concomitant]
     Active Substance: EMICIZUMAB-KXWH
     Dosage: 60 MG, QOW
  6. HEMLIBRA [Concomitant]
     Active Substance: EMICIZUMAB-KXWH
     Dosage: 60 MG EVERY 28 DAYS

REACTIONS (5)
  - Fall [Unknown]
  - Joint injury [Unknown]
  - Traumatic haemorrhage [Not Recovered/Not Resolved]
  - Head injury [Unknown]
  - Joint swelling [Unknown]

NARRATIVE: CASE EVENT DATE: 20230101
